FAERS Safety Report 13701857 (Version 1)
Quarter: 2017Q2

REPORT INFORMATION
  Report Type: Report from Study
  Country: US (occurrence: BR)
  Receive Date: 20170629
  Receipt Date: 20170629
  Transmission Date: 20170830
  Serious: Yes (Death)
  Sender: FDA-Public Use
  Company Number: US-SUNOVION-2017SUN002717

PATIENT
  Sex: Female

DRUGS (3)
  1. MIFLONIDE [Suspect]
     Active Substance: BUDESONIDE
     Indication: PRODUCT USED FOR UNKNOWN INDICATION
     Dosage: MIFLONIDE (BUDESONIDE) 400 ?G, UNK
     Route: 055
  2. INDACATEROL [Suspect]
     Active Substance: INDACATEROL
     Indication: PRODUCT USED FOR UNKNOWN INDICATION
     Dosage: ONBREZ BREEZHALER (INDACATEROL) 300 UG
     Route: 055
  3. INDACATEROL AND GLYCOPYRROLATE [Suspect]
     Active Substance: GLYCOPYRROLATE\INDACATEROL MALEATE
     Indication: PRODUCT USED FOR UNKNOWN INDICATION
     Dosage: ULTIBRO BREEZHALER (INDACATEROL, GLYCOPYRRONIUM BROMIDE) 110 MCG + 50 MCG
     Route: 055

REACTIONS (1)
  - Death [Fatal]
